FAERS Safety Report 15902774 (Version 2)
Quarter: 2019Q1

REPORT INFORMATION
  Report Type: Spontaneous
  Country: CA (occurrence: CA)
  Receive Date: 20190202
  Receipt Date: 20190208
  Transmission Date: 20190417
  Serious: Yes (Other)
  Sender: FDA-Public Use
  Company Number: CA-TEVA-2019-CA-100001

PATIENT
  Sex: Male

DRUGS (1)
  1. TEVA-INDOMETHACIN [Suspect]
     Active Substance: INDOMETHACIN
     Indication: GOUT
     Dosage: 3 DOSAGE FORMS DAILY; 1 CAPSULE 3 TIMES DAILY WHEN NEEDED FOR 1 WEEK
     Route: 065

REACTIONS (6)
  - Blister [Unknown]
  - Abdominal pain upper [Not Recovered/Not Resolved]
  - Dyspepsia [Not Recovered/Not Resolved]
  - Hyperchlorhydria [Not Recovered/Not Resolved]
  - Gastrointestinal bacterial overgrowth [Not Recovered/Not Resolved]
  - Ulcer [Not Recovered/Not Resolved]
